FAERS Safety Report 5856619-4 (Version None)
Quarter: 2008Q3

REPORT INFORMATION
  Report Type: 
  Country: None (occurrence: None)
  Receive Date: 20080822
  Receipt Date: 20080822
  Transmission Date: 20090109
  Serious: Yes (Other)
  Sender: FDA-Public Use
  Company Number: None

PATIENT
  Age: 61 Year
  Sex: Male
  Weight: 106.5953 kg

DRUGS (1)
  1. COUMADIN [Suspect]
     Indication: PULMONARY THROMBOSIS
     Dosage: 1 1 X DAY
     Dates: start: 20080818, end: 20080821

REACTIONS (2)
  - PAIN IN EXTREMITY [None]
  - SKIN DISCOLOURATION [None]
